FAERS Safety Report 12189197 (Version 2)
Quarter: 2016Q2

REPORT INFORMATION
  Report Type: Spontaneous
  Country: US (occurrence: US)
  Receive Date: 20160317
  Receipt Date: 20160504
  Transmission Date: 20160815
  Serious: No
  Sender: FDA-Public Use
  Company Number: US-009507513-1603USA007011

PATIENT
  Age: 71 Year
  Sex: Male

DRUGS (6)
  1. REBETOL [Suspect]
     Active Substance: RIBAVIRIN
     Indication: CHRONIC HEPATITIS C
     Dosage: UNK
     Route: 048
     Dates: start: 1997, end: 1998
  2. INTRON A [Suspect]
     Active Substance: INTERFERON ALFA-2B
     Dosage: UNK
     Dates: start: 1997, end: 1998
  3. REBETOL [Suspect]
     Active Substance: RIBAVIRIN
     Dosage: UNK
     Dates: start: 2001, end: 2002
  4. INTRON A [Suspect]
     Active Substance: INTERFERON ALFA-2B
     Dosage: UNK
     Dates: start: 1994
  5. PEGINTERFERON ALFA-2A [Suspect]
     Active Substance: PEGINTERFERON ALFA-2A
     Indication: CHRONIC HEPATITIS C
     Dosage: UNK
     Dates: start: 2001, end: 2002
  6. INTRON A [Suspect]
     Active Substance: INTERFERON ALFA-2B
     Indication: CHRONIC HEPATITIS C
     Dosage: UNK
     Dates: start: 1992

REACTIONS (5)
  - No therapeutic response [Unknown]
  - Parkinson^s disease [Unknown]
  - No therapeutic response [Unknown]
  - No therapeutic response [Unknown]
  - No therapeutic response [Unknown]

NARRATIVE: CASE EVENT DATE: 1992
